FAERS Safety Report 17003905 (Version 2)
Quarter: 2019Q4

REPORT INFORMATION
  Report Type: Spontaneous
  Country: JP (occurrence: JP)
  Receive Date: 20191107
  Receipt Date: 20191203
  Transmission Date: 20200122
  Serious: No
  Sender: FDA-Public Use
  Company Number: JP-BEH-2019109069

PATIENT
  Age: 81 Year
  Sex: Female

DRUGS (4)
  1. FIBROGAMMIN P [Suspect]
     Active Substance: FACTOR XIII CONCENTRATE (HUMAN)
     Dosage: UNK
     Route: 042
  2. FIBROGAMMIN P [Suspect]
     Active Substance: FACTOR XIII CONCENTRATE (HUMAN)
     Indication: FACTOR XIII DEFICIENCY
     Dosage: 12 VIALS (6 VIALSX2) TOT
     Route: 042
     Dates: start: 20191027, end: 20191031
  3. FIBROGAMMIN P [Suspect]
     Active Substance: FACTOR XIII CONCENTRATE (HUMAN)
     Indication: SUTURE RUPTURE
     Dosage: UNK
     Route: 042
  4. FIBROGAMMIN P [Suspect]
     Active Substance: FACTOR XIII CONCENTRATE (HUMAN)
     Dosage: 12 VIALS (6 VIALSX2) TOT
     Route: 042
     Dates: start: 20191101, end: 20191105

REACTIONS (2)
  - No adverse event [Unknown]
  - Overdose [Unknown]
